FAERS Safety Report 7770930-1 (Version None)
Quarter: 2011Q3

REPORT INFORMATION
  Report Type: 
  Country: None (occurrence: None)
  Receive Date: 20110922
  Receipt Date: 20101208
  Transmission Date: 20111222
  Serious: Yes (Other)
  Sender: FDA-Public Use
  Company Number: US-ASTRAZENECA-2010SE58299

PATIENT
  Age: 43 Year
  Sex: Male

DRUGS (9)
  1. VITAMIN TAB [Concomitant]
  2. OXYCODONE HCL [Concomitant]
     Indication: BACK PAIN
  3. IBUPROFEN [Concomitant]
     Indication: BACK PAIN
  4. SEROQUEL XR [Suspect]
     Route: 048
     Dates: start: 20100901
  5. SEROQUEL XR [Suspect]
     Route: 048
     Dates: start: 20100901
  6. SEROQUEL XR [Suspect]
     Indication: INSOMNIA
     Route: 048
     Dates: start: 20100901, end: 20100901
  7. SEROQUEL XR [Suspect]
     Indication: DEPRESSION
     Route: 048
     Dates: start: 20100901, end: 20100901
  8. SEROQUEL XR [Suspect]
     Route: 048
     Dates: start: 20100901
  9. SEROQUEL XR [Suspect]
     Indication: SUICIDAL IDEATION
     Route: 048
     Dates: start: 20100901, end: 20100901

REACTIONS (9)
  - NAUSEA [None]
  - DRY EYE [None]
  - INSOMNIA [None]
  - THERAPEUTIC RESPONSE UNEXPECTED [None]
  - FEELING ABNORMAL [None]
  - INCORRECT DOSE ADMINISTERED [None]
  - SUICIDAL IDEATION [None]
  - DRUG DOSE OMISSION [None]
  - DRY MOUTH [None]
